FAERS Safety Report 21885613 (Version 1)
Quarter: 2023Q1

REPORT INFORMATION
  Report Type: Other
  Country: US (occurrence: None)
  Receive Date: 20230119
  Receipt Date: 20230119
  Transmission Date: 20230418
  Serious: Yes (Other)
  Sender: FDA-Public Use
  Company Number: US-ROCHE-3262944

PATIENT
  Age: 55 Year
  Sex: Female

DRUGS (1)
  1. OCREVUS [Suspect]
     Active Substance: OCRELIZUMAB
     Indication: Multiple sclerosis relapse
     Dosage: 300 MG IV ON DAY 1 AND DAY 15, AND THEN 600 MG IV EVERY 6 MONTHS
     Route: 042

REACTIONS (1)
  - Nasopharyngitis [Recovering/Resolving]
